FAERS Safety Report 18066651 (Version 20)
Quarter: 2024Q3

REPORT INFORMATION
  Report Type: Report from Study
  Country: US (occurrence: US)
  Receive Date: 20200724
  Receipt Date: 20240925
  Transmission Date: 20241017
  Serious: Yes (Hospitalization, Other)
  Sender: GLAXOSMITHKLINE
  Company Number: US-GLAXOSMITHKLINE-US2020AMR133960

PATIENT

DRUGS (14)
  1. NIRAPARIB [Suspect]
     Active Substance: NIRAPARIB
     Indication: Genital neoplasm malignant female
     Dosage: 300 MG, QD
     Dates: start: 201911
  2. NIRAPARIB [Suspect]
     Active Substance: NIRAPARIB
     Indication: Adenocarcinoma
     Dosage: 200 MG, QD
  3. NIRAPARIB [Suspect]
     Active Substance: NIRAPARIB
     Indication: Ovarian cancer
     Dosage: 300 MG, QD
     Route: 048
     Dates: start: 20200630
  4. NIRAPARIB [Suspect]
     Active Substance: NIRAPARIB
     Dosage: 300 MG, QD
     Route: 065
     Dates: start: 20200702
  5. NIRAPARIB [Suspect]
     Active Substance: NIRAPARIB
     Dosage: 100 MG, QD
     Route: 065
     Dates: start: 20200814
  6. NIRAPARIB [Suspect]
     Active Substance: NIRAPARIB
     Dosage: 200 MG, QD
     Route: 065
  7. NIRAPARIB [Suspect]
     Active Substance: NIRAPARIB
     Dosage: 200 MG, QD
     Route: 048
  8. NIRAPARIB [Suspect]
     Active Substance: NIRAPARIB
     Dosage: 100 MG, QD
     Route: 048
  9. NIRAPARIB [Suspect]
     Active Substance: NIRAPARIB
     Dosage: 200 MG, QD
     Route: 048
  10. NIRAPARIB [Suspect]
     Active Substance: NIRAPARIB
     Dosage: 100 MG, QD (FOR 3 DAYS)
     Route: 048
  11. NIRAPARIB [Suspect]
     Active Substance: NIRAPARIB
     Dosage: 200 MG, QD
     Route: 048
  12. NIRAPARIB [Suspect]
     Active Substance: NIRAPARIB
     Indication: Ovarian cancer
     Dosage: 200 MG, QD (AT NIGHT)
     Dates: end: 202402
  13. COVID-19 VACCINE [Concomitant]
     Indication: COVID-19 prophylaxis
     Dosage: UNK
  14. ATENOLOL [Concomitant]
     Active Substance: ATENOLOL
     Indication: Product used for unknown indication
     Dosage: UNK

REACTIONS (20)
  - Platelet count decreased [Recovered/Resolved]
  - Neuropathy peripheral [Recovering/Resolving]
  - Recurrent cancer [Not Recovered/Not Resolved]
  - Adverse drug reaction [Unknown]
  - Decreased appetite [Unknown]
  - Memory impairment [Unknown]
  - Urinary tract infection [Unknown]
  - Blood uric acid increased [Not Recovered/Not Resolved]
  - Platelet count abnormal [Unknown]
  - Asthenia [Recovering/Resolving]
  - Stent placement [Unknown]
  - Muscular weakness [Unknown]
  - Fatigue [Not Recovered/Not Resolved]
  - Decreased activity [Not Recovered/Not Resolved]
  - Psychomotor hyperactivity [Unknown]
  - Coronavirus infection [Recovered/Resolved]
  - Product dose omission issue [Unknown]
  - Product use in unapproved indication [Unknown]
  - Drug monitoring procedure not performed [Unknown]
  - Intentional product use issue [Recovered/Resolved]

NARRATIVE: CASE EVENT DATE: 20200201
